FAERS Safety Report 14194506 (Version 1)
Quarter: 2017Q4

REPORT INFORMATION
  Report Type: Spontaneous
  Country: US (occurrence: US)
  Receive Date: 20171115
  Receipt Date: 20171115
  Transmission Date: 20180321
  Serious: Yes (Disabling)
  Sender: FDA-Public Use
  Company Number: None

PATIENT
  Sex: Female
  Weight: 49.5 kg

DRUGS (8)
  1. OMEGA OILS [Concomitant]
  2. TRIAMCINOLONE [Suspect]
     Active Substance: TRIAMCINOLONE
     Indication: ECZEMA
     Route: 061
     Dates: start: 20160601, end: 20170201
  3. CHROMIUM [Concomitant]
     Active Substance: CHROMIC CHLORIDE\CHROMIUM
  4. MAGNESIUM [Concomitant]
     Active Substance: MAGNESIUM
  5. HYDROCORTIZONE [Suspect]
     Active Substance: HYDROCORTISONE
     Indication: ECZEMA
     Route: 061
     Dates: start: 20151001, end: 20170201
  6. PROBIOTICS [Concomitant]
     Active Substance: PROBIOTICS NOS
  7. MULTIVITAMIN [Concomitant]
     Active Substance: VITAMINS
  8. DIGESTIVE ENZYMES [Concomitant]
     Active Substance: UNSPECIFIED INGREDIENT

REACTIONS (9)
  - Maternal exposure during pregnancy [None]
  - Secretion discharge [None]
  - Placental disorder [None]
  - Dry skin [None]
  - Postpartum haemorrhage [None]
  - Skin exfoliation [None]
  - Pain [None]
  - Skin tightness [None]
  - Premature delivery [None]

NARRATIVE: CASE EVENT DATE: 20160701
